FAERS Safety Report 7215429-6 (Version None)
Quarter: 2011Q1

REPORT INFORMATION
  Report Type: 
  Country: None (occurrence: None)
  Receive Date: 20110107
  Receipt Date: 20110104
  Transmission Date: 20110831
  Serious: Yes (Hospitalization, Other)
  Sender: FDA-Public Use
  Company Number: US-AMGEN-USASP2010008077

PATIENT

DRUGS (8)
  1. INFLUENZA VACCINE [Concomitant]
  2. TIMOPTIC [Concomitant]
     Dosage: 0.25 %, QD
     Route: 047
  3. TAPAZOLE [Concomitant]
     Dosage: 10 MG, Q8H
     Dates: start: 20100623
  4. XALATAN [Concomitant]
     Dosage: 0.005 %, QD
     Route: 047
  5. ASPIRIN [Concomitant]
     Dosage: 325 MG, QD
     Route: 048
  6. CALTRATE 600 PLUS IRON AND VITAMIN D [Concomitant]
     Dosage: UNK UNK, QD
     Route: 048
  7. CARDIZEM LA [Concomitant]
     Dosage: UNK UNK, QD
     Route: 048
     Dates: start: 20100621
  8. PROLIA [Suspect]
     Indication: OSTEOPOROSIS POSTMENOPAUSAL
     Dosage: 60 MG, Q6MO
     Route: 058

REACTIONS (17)
  - DIVERTICULITIS [None]
  - ADVERSE DRUG REACTION [None]
  - LETHARGY [None]
  - FEELING COLD [None]
  - DISORIENTATION [None]
  - WHEEZING [None]
  - PRODUCTIVE COUGH [None]
  - CARDIOMEGALY [None]
  - INTESTINAL OBSTRUCTION [None]
  - CONFUSIONAL STATE [None]
  - DECREASED APPETITE [None]
  - DIZZINESS [None]
  - SKIN WARM [None]
  - PNEUMONIA [None]
  - BEDRIDDEN [None]
  - LEUKOCYTOSIS [None]
  - DYSGEUSIA [None]
